FAERS Safety Report 6598659-6 (Version None)
Quarter: 2010Q1

REPORT INFORMATION
  Report Type: 
  Country: None (occurrence: None)
  Receive Date: 20100224
  Receipt Date: 20100215
  Transmission Date: 20100710
  Serious: Yes (Hospitalization)
  Sender: FDA-Public Use
  Company Number: JP-JNJFOC-20100204692

PATIENT
  Age: 66 Year
  Sex: Male

DRUGS (4)
  1. DUROTEP MT [Suspect]
     Indication: CANCER PAIN
     Route: 062
  2. MAGMITT [Concomitant]
     Route: 048
  3. PROTECADIN [Concomitant]
     Route: 048
  4. PRAVASTAN [Concomitant]
     Route: 048

REACTIONS (2)
  - ADVERSE EVENT [None]
  - NAUSEA [None]
